FAERS Safety Report 7737712-8 (Version None)
Quarter: 2011Q3

REPORT INFORMATION
  Report Type: 
  Country: None (occurrence: None)
  Receive Date: 20110908
  Receipt Date: 20110902
  Transmission Date: 20111222
  Serious: Yes (Hospitalization)
  Sender: FDA-Public Use
  Company Number: US-BRISTOL-MYERS SQUIBB COMPANY-16028151

PATIENT
  Age: 61 Year
  Sex: Male
  Weight: 72 kg

DRUGS (2)
  1. LEUKINE [Suspect]
     Indication: MALIGNANT MELANOMA
     Dosage: 250 MCG/DAY, DAYS 1- 14 1750 MG C2 C3 DELAYED UNTIL 01SEP11
     Route: 058
     Dates: start: 20110715, end: 20110817
  2. IPILIMUMAB [Suspect]
     Indication: MALIGNANT MELANOMA
     Dosage: DAY 1 C3 DELAYED UNTIL 01SEP11
     Route: 042
     Dates: start: 20110715, end: 20110804

REACTIONS (2)
  - EMBOLISM [None]
  - FATIGUE [None]
